FAERS Safety Report 5391178-4 (Version None)
Quarter: 2007Q3

REPORT INFORMATION
  Report Type: 
  Country: None (occurrence: None)
  Receive Date: 20070719
  Receipt Date: 20070710
  Transmission Date: 20080115
  Serious: Yes (Hospitalization, Other)
  Sender: FDA-Public Use
  Company Number: PHRM2007FR01834

PATIENT
  Age: 87 Year
  Sex: Male

DRUGS (4)
  1. EXELON [Suspect]
     Dosage: 6 MG, QD
     Route: 048
  2. PREVISCAN [Suspect]
     Dosage: 15 MG EVEN DAY - 5 MG ODD DAY
     Route: 048
  3. LEVOTHYROXINE SODIUM [Suspect]
     Dosage: 50 UG, QD
     Route: 048
  4. ATARAX [Concomitant]
     Dosage: 100 MG, QD
     Route: 048

REACTIONS (3)
  - INTERNATIONAL NORMALISED RATIO INCREASED [None]
  - MALAISE [None]
  - RESPIRATORY TRACT CONGESTION [None]
